FAERS Safety Report 18198148 (Version 3)
Quarter: 2023Q2

REPORT INFORMATION
  Report Type: Spontaneous
  Country: US (occurrence: US)
  Receive Date: 20200826
  Receipt Date: 20230613
  Transmission Date: 20230722
  Serious: Yes (Hospitalization)
  Sender: FDA-Public Use
  Company Number: US-PFIZER INC-2020328573

PATIENT
  Age: 77 Year
  Sex: Female

DRUGS (1)
  1. BOSULIF [Suspect]
     Active Substance: BOSUTINIB MONOHYDRATE
     Indication: Philadelphia positive chronic myeloid leukaemia
     Dosage: 300 MG, 1X/DAY (TAKE 300 MGS BY MOUTH ONE TIME DAILY)
     Route: 048
     Dates: start: 20200219

REACTIONS (1)
  - Diabetic foot [Unknown]
